FAERS Safety Report 22518037 (Version 2)
Quarter: 2023Q2

REPORT INFORMATION
  Report Type: Report from Study
  Country: GR (occurrence: None)
  Receive Date: 20230605
  Receipt Date: 20230612
  Transmission Date: 20230721
  Serious: Yes (Other)
  Sender: FDA-Public Use
  Company Number: GR-Merck Healthcare KGaA-9406008

PATIENT
  Age: 38 Year
  Sex: Female

DRUGS (1)
  1. REBIF [Suspect]
     Active Substance: INTERFERON BETA-1A
     Indication: Multiple sclerosis
     Route: 058
     Dates: start: 20170821

REACTIONS (2)
  - Vaginal cancer [Not Recovered/Not Resolved]
  - Vaginal polyp [Unknown]

NARRATIVE: CASE EVENT DATE: 20230101
